FAERS Safety Report 7106456-8 (Version None)
Quarter: 2010Q4

REPORT INFORMATION
  Report Type: 
  Country: None (occurrence: None)
  Receive Date: 20101116
  Receipt Date: 20101105
  Transmission Date: 20110411
  Serious: Yes (Hospitalization)
  Sender: FDA-Public Use
  Company Number: JP-GENENTECH-307086

PATIENT
  Sex: Male

DRUGS (10)
  1. RANIBIZUMAB [Suspect]
     Indication: MACULAR DEGENERATION
     Dosage: 0.05 ML, UNK
     Route: 031
     Dates: start: 20090527
  2. RANIBIZUMAB [Suspect]
     Dosage: 0.05 ML, UNK
     Route: 031
     Dates: start: 20090708
  3. RANIBIZUMAB [Suspect]
     Dosage: 0.05 ML, UNK
     Route: 031
     Dates: start: 20090805
  4. RANIBIZUMAB [Suspect]
     Dosage: 0.05 ML, UNK
     Route: 031
     Dates: start: 20100518
  5. LEVOFLOXACIN [Concomitant]
     Indication: PRODUCT USED FOR UNKNOWN INDICATION
     Dosage: UNK
     Dates: start: 20090501
  6. ARTIFICIAL TEARS [Concomitant]
     Indication: PRODUCT USED FOR UNKNOWN INDICATION
  7. BLOPRESS [Concomitant]
     Indication: PRODUCT USED FOR UNKNOWN INDICATION
  8. SIGMART [Concomitant]
     Indication: PRODUCT USED FOR UNKNOWN INDICATION
  9. VIGAMOX [Concomitant]
     Indication: PRODUCT USED FOR UNKNOWN INDICATION
     Dosage: UNK
     Dates: start: 20100501, end: 20100501
  10. JUVELA NICOTINATE [Concomitant]
     Indication: PRODUCT USED FOR UNKNOWN INDICATION
     Dosage: UNK
     Dates: start: 20100319

REACTIONS (5)
  - CATARACT [None]
  - CATARACT OPERATION [None]
  - DISEASE PROGRESSION [None]
  - MACULAR HOLE [None]
  - VISUAL ACUITY REDUCED [None]
